FAERS Safety Report 15208999 (Version 1)
Quarter: 2018Q3

REPORT INFORMATION
  Report Type: Spontaneous
  Country: FR (occurrence: FR)
  Receive Date: 20180727
  Receipt Date: 20180727
  Transmission Date: 20181010
  Serious: Yes (Death, Hospitalization)
  Sender: FDA-Public Use
  Company Number: FR-TEVA-2018-FR-930363

PATIENT
  Age: 8 Year
  Sex: Male
  Weight: 26 kg

DRUGS (5)
  1. DOXORUBICIN [Suspect]
     Active Substance: DOXORUBICIN
     Indication: NEUROFIBROMATOSIS
     Dosage: ? J1, J2
     Route: 042
     Dates: start: 20170914, end: 20170915
  2. ZOPHREN [Suspect]
     Active Substance: ONDANSETRON
     Indication: NAUSEA
     Dosage: 16 MILLIGRAM DAILY;
     Route: 042
     Dates: start: 20170914, end: 20170920
  3. HOLOXAN [Suspect]
     Active Substance: IFOSFAMIDE
     Indication: NEUROFIBROMATOSIS
     Dosage: ? J1, J2, J3
     Route: 042
     Dates: start: 20170914, end: 20170916
  4. PLITICAN [Suspect]
     Active Substance: ALIZAPRIDE HYDROCHLORIDE
     Indication: NAUSEA
     Dosage: 150 MILLIGRAM DAILY;
     Route: 042
     Dates: start: 20170914, end: 20170917
  5. MESNA EG [Suspect]
     Active Substance: MESNA
     Indication: PROPHYLAXIS
     Dosage: J1, J2, J3
     Route: 042
     Dates: start: 20170914, end: 20170916

REACTIONS (2)
  - Somnolence [Recovered/Resolved]
  - Neurotoxicity [Recovered/Resolved]

NARRATIVE: CASE EVENT DATE: 20170916
